FAERS Safety Report 9411376 (Version 1)
Quarter: 2013Q3

REPORT INFORMATION
  Report Type: Spontaneous
  Country: GB (occurrence: GB)
  Receive Date: 20130722
  Receipt Date: 20130722
  Transmission Date: 20140515
  Serious: Yes (Life-Threatening, Hospitalization)
  Sender: FDA-Public Use
  Company Number: PHHY2013GB076459

PATIENT
  Age: 41 Year
  Sex: Male

DRUGS (1)
  1. METHOTREXATE [Suspect]
     Indication: SARCOIDOSIS
     Dosage: 2.5 MG
     Route: 048

REACTIONS (3)
  - Pharyngeal oedema [Unknown]
  - Paraesthesia oral [Unknown]
  - Paraesthesia [Unknown]
